FAERS Safety Report 18690759 (Version 1)
Quarter: 2021Q1

REPORT INFORMATION
  Report Type: Spontaneous
  Country: US (occurrence: US)
  Receive Date: 20210101
  Receipt Date: 20210101
  Transmission Date: 20210419
  Serious: Yes (Other)
  Sender: FDA-Public Use
  Company Number: US-MICRO LABS LIMITED-ML2020-03901

PATIENT
  Age: 47 Year
  Sex: Male
  Weight: 86 kg

DRUGS (8)
  1. METHYLPREDNISOLONE. [Concomitant]
     Active Substance: METHYLPREDNISOLONE
     Indication: ACUTE RESPIRATORY FAILURE
  2. HYDROXYCHLOROQUINE [Concomitant]
     Active Substance: HYDROXYCHLOROQUINE
     Indication: ACUTE RESPIRATORY FAILURE
     Dosage: 400 MG EVERY 12 H FOR 2 DOSES
  3. HYDROXYCHLOROQUINE [Concomitant]
     Active Substance: HYDROXYCHLOROQUINE
     Dosage: 200 MG EVERY 12 H FOR 4 DAYS
  4. CEFTRIAXONE. [Concomitant]
     Active Substance: CEFTRIAXONE
     Indication: ACUTE RESPIRATORY FAILURE
  5. VITAMIN C [Concomitant]
     Active Substance: ASCORBIC ACID
     Indication: ACUTE RESPIRATORY FAILURE
  6. APIXABAN [Suspect]
     Active Substance: APIXABAN
     Indication: ANTICOAGULANT THERAPY
  7. AZITHROMYCIN ANHYDROUS. [Concomitant]
     Active Substance: AZITHROMYCIN ANHYDROUS
     Indication: ACUTE RESPIRATORY FAILURE
  8. ZINC SULFATE. [Concomitant]
     Active Substance: ZINC SULFATE
     Indication: ACUTE RESPIRATORY FAILURE

REACTIONS (1)
  - Drug ineffective [Unknown]
